FAERS Safety Report 13197233 (Version 1)
Quarter: 2017Q1

REPORT INFORMATION
  Report Type: Spontaneous
  Country: US (occurrence: US)
  Receive Date: 20170208
  Receipt Date: 20170208
  Transmission Date: 20170428
  Serious: No
  Sender: FDA-Public Use
  Company Number: US-AMGEN-USASP2016173074

PATIENT
  Age: 81 Year
  Sex: Female

DRUGS (4)
  1. CYCLOPHOSPHAMIDE. [Concomitant]
     Active Substance: CYCLOPHOSPHAMIDE
     Indication: BREAST CANCER
     Dosage: UNK, EVERY 21 DAYS
  2. METHOTREXATE. [Concomitant]
     Active Substance: METHOTREXATE
     Indication: BREAST CANCER
     Dosage: UNK, EVERY 21 DAYS
  3. FLUOROURACIL. [Concomitant]
     Active Substance: FLUOROURACIL
     Indication: BREAST CANCER
     Dosage: UNK, EVERY 21 DAYS
  4. NEULASTA [Suspect]
     Active Substance: PEGFILGRASTIM
     Indication: PRODUCT USED FOR UNKNOWN INDICATION
     Dosage: UNK
     Route: 065

REACTIONS (1)
  - Wrong technique in product usage process [Unknown]
